FAERS Safety Report 9460086 (Version 1)
Quarter: 2013Q3

REPORT INFORMATION
  Report Type: Spontaneous
  Country: US (occurrence: None)
  Receive Date: 20130814
  Receipt Date: 20130814
  Transmission Date: 20140515
  Serious: Yes (Other)
  Sender: FDA-Public Use
  Company Number: None

PATIENT
  Age: 80 Year
  Sex: Male

DRUGS (1)
  1. STIVARGA [Suspect]
     Indication: RECTAL CANCER
     Dosage: 3 TABLETS QD ORAL
     Route: 048
     Dates: start: 20130223, end: 20130807

REACTIONS (3)
  - Drug ineffective [None]
  - Metastasis [None]
  - Condition aggravated [None]
